FAERS Safety Report 9392829 (Version 1)
Quarter: 2013Q3

REPORT INFORMATION
  Report Type: Report from Study
  Country: BR (occurrence: BR)
  Receive Date: 20130710
  Receipt Date: 20130710
  Transmission Date: 20140515
  Serious: Yes (Hospitalization)
  Sender: FDA-Public Use
  Company Number: PHHY2013BR071760

PATIENT
  Sex: Female

DRUGS (3)
  1. SANDOSTATIN LAR [Suspect]
     Dosage: UNK UKN, UNK
  2. SANDOSTATIN LAR [Suspect]
     Dosage: UNK UKN, UNK
  3. ACETYLSALICYLIC ACID [Concomitant]

REACTIONS (4)
  - Angina pectoris [Unknown]
  - Chest pain [Unknown]
  - Weight decreased [Unknown]
  - Central obesity [Unknown]
